FAERS Safety Report 11989776 (Version 1)
Quarter: 2016Q1

REPORT INFORMATION
  Report Type: Spontaneous
  Country: US (occurrence: US)
  Receive Date: 20160202
  Receipt Date: 20160202
  Transmission Date: 20160526
  Serious: No
  Sender: FDA-Public Use
  Company Number: US-ABBVIE-15P-163-1357995-00

PATIENT
  Age: 42 Year
  Sex: Female
  Weight: 53.57 kg

DRUGS (2)
  1. LEUPROLIDE ACETATE DEPOT [Suspect]
     Active Substance: LEUPROLIDE ACETATE
     Indication: UTERINE LEIOMYOMA
     Route: 050
     Dates: start: 201406, end: 201406
  2. IRON [Concomitant]
     Active Substance: IRON
     Indication: PRODUCT USED FOR UNKNOWN INDICATION
     Route: 048
     Dates: start: 2014

REACTIONS (1)
  - Hot flush [Recovered/Resolved]

NARRATIVE: CASE EVENT DATE: 201407
